FAERS Safety Report 6633137-7 (Version None)
Quarter: 2010Q1

REPORT INFORMATION
  Report Type: 
  Country: None (occurrence: None)
  Receive Date: 20100312
  Receipt Date: 20100302
  Transmission Date: 20100710
  Serious: Yes (Hospitalization, Other)
  Sender: FDA-Public Use
  Company Number: PHHY2010MX02206

PATIENT
  Age: 72 Year
  Sex: Female

DRUGS (2)
  1. EXFORGE [Suspect]
     Indication: HYPERTENSION
     Dosage: 1 TABLET (160/5 MG) DAILY
     Route: 048
     Dates: start: 20090901, end: 20091215
  2. LEVOTHYROXINE [Concomitant]

REACTIONS (8)
  - AMNESIA [None]
  - COORDINATION ABNORMAL [None]
  - FALL [None]
  - GAIT DISTURBANCE [None]
  - HIP FRACTURE [None]
  - INFARCTION [None]
  - MUSCULAR WEAKNESS [None]
  - URINARY TRACT INFECTION [None]
